FAERS Safety Report 4804404-4 (Version None)
Quarter: 2005Q4

REPORT INFORMATION
  Report Type: 
  Country: None (occurrence: None)
  Receive Date: 20051020
  Receipt Date: 20051014
  Transmission Date: 20060501
  Serious: Yes (Life-Threatening, Disabling)
  Sender: FDA-Public Use
  Company Number: CA-GLAXOSMITHKLINE-A0578350A

PATIENT
  Age: 64 Year
  Sex: Female
  Weight: 125.5 kg

DRUGS (8)
  1. FLOVENT [Suspect]
     Indication: ASTHMA
     Dosage: 2PUFF TWICE PER DAY
     Route: 055
     Dates: start: 20051001, end: 20051007
  2. CELEXA [Concomitant]
     Indication: CATAPLEXY
     Dosage: 20MG PER DAY
     Dates: start: 20030101
  3. LASIX [Concomitant]
     Indication: BLOOD PRESSURE
     Dosage: 40MG PER DAY
     Dates: start: 20030101
  4. ZAROXOLYN [Concomitant]
     Indication: BLOOD PRESSURE
     Dosage: 2.5MG PER DAY
     Dates: start: 20050701
  5. ELTROXIN [Concomitant]
     Dosage: .15MG PER DAY
     Dates: start: 19990101
  6. HUMULIN N [Concomitant]
  7. HUMALOG [Concomitant]
  8. NITROSPRAY [Concomitant]

REACTIONS (3)
  - CATAPLEXY [None]
  - GAIT DISTURBANCE [None]
  - MUSCLE DISORDER [None]
